FAERS Safety Report 6936218-3 (Version None)
Quarter: 2010Q3

REPORT INFORMATION
  Report Type: 
  Country: None (occurrence: None)
  Receive Date: 20100823
  Receipt Date: 20100813
  Transmission Date: 20110219
  Serious: Yes (Hospitalization)
  Sender: FDA-Public Use
  Company Number: DE-PFIZER INC-2008083699

PATIENT
  Age: 72 Year
  Sex: Female
  Weight: 68 kg

DRUGS (7)
  1. SUNITINIB MALATE [Suspect]
     Indication: NON-SMALL CELL LUNG CANCER
     Dosage: 37.5 MG, 1X/DAY
     Route: 048
     Dates: start: 20080912, end: 20081006
  2. ERLOTINIB HYDROCHLORIDE [Suspect]
     Indication: NON-SMALL CELL LUNG CANCER
     Dosage: 150 MG, 1X/DAY
     Route: 048
     Dates: start: 20080912
  3. CAPVAL [Concomitant]
     Dosage: UNK
     Route: 048
     Dates: start: 20080904
  4. OPIPRAMOL [Concomitant]
     Dosage: UNK
     Route: 048
     Dates: start: 20080115
  5. CALCIUM CARBONATE/COLECALCIFEROL [Concomitant]
     Dosage: UNK
     Route: 048
     Dates: start: 20080127
  6. ACETYLCYSTEINE [Concomitant]
     Dosage: UNK
     Route: 048
     Dates: start: 20080904
  7. OXYGEN [Concomitant]
     Dosage: UNK
     Route: 048
     Dates: start: 20080929

REACTIONS (1)
  - PERFORMANCE STATUS DECREASED [None]
